FAERS Safety Report 23378531 (Version 1)
Quarter: 2024Q1

REPORT INFORMATION
  Report Type: Spontaneous
  Country: CN (occurrence: CN)
  Receive Date: 20240108
  Receipt Date: 20240108
  Transmission Date: 20240410
  Serious: Yes (Other)
  Sender: FDA-Public Use
  Company Number: CN-ORGANON-O2401CHN000412

PATIENT
  Age: 26 Year
  Sex: Female

DRUGS (1)
  1. DIPROSPAN [Suspect]
     Active Substance: BETAMETHASONE DIPROPIONATE\BETAMETHASONE SODIUM PHOSPHATE
     Indication: Scar
     Dosage: 1 MILLILITER, QD, IM
     Route: 030
     Dates: start: 20231127, end: 20231127

REACTIONS (3)
  - Pain [Recovering/Resolving]
  - Erythema [Recovering/Resolving]
  - Swelling [Recovering/Resolving]

NARRATIVE: CASE EVENT DATE: 20231127
